FAERS Safety Report 15699303 (Version 1)
Quarter: 2018Q4

REPORT INFORMATION
  Report Type: Other
  Country: ES (occurrence: ES)
  Receive Date: 20181207
  Receipt Date: 20181207
  Transmission Date: 20190205
  Serious: Yes (Life-Threatening, Other)
  Sender: FDA-Public Use
  Company Number: ES-APOTEX-2018AP026121

PATIENT
  Age: 88 Year
  Sex: Male

DRUGS (5)
  1. CARDURAN NEO [Concomitant]
     Active Substance: DOXAZOSIN MESYLATE
     Indication: PRODUCT USED FOR UNKNOWN INDICATION
     Dosage: 1-0-0
     Route: 048
     Dates: start: 20110101
  2. METAMIZOL                          /06276701/ [Suspect]
     Active Substance: METAMIZOLE
     Indication: PRODUCT USED FOR UNKNOWN INDICATION
     Dosage: 575MG, 1-1-1, EVERY 8 HOUR
     Route: 048
     Dates: start: 20170925, end: 20171003
  3. PANTOPRAZOL                        /01263201/ [Concomitant]
     Active Substance: PANTOPRAZOLE
     Indication: PRODUCT USED FOR UNKNOWN INDICATION
     Dosage: 40 MG DIA
     Route: 048
     Dates: start: 20110101
  4. TRAMADOL. [Suspect]
     Active Substance: TRAMADOL
     Indication: PRODUCT USED FOR UNKNOWN INDICATION
     Dosage: 50MG, 1-1-1, 8 HOUR
     Route: 048
     Dates: start: 20170925, end: 20171003
  5. PARACETAMOL [Concomitant]
     Active Substance: ACETAMINOPHEN
     Indication: PRODUCT USED FOR UNKNOWN INDICATION
     Dosage: 1GR, 1-1-1, EVERY 8 HOUR
     Route: 048
     Dates: start: 20170925

REACTIONS (1)
  - Agranulocytosis [Recovered/Resolved]

NARRATIVE: CASE EVENT DATE: 20171003
